FAERS Safety Report 23858670 (Version 1)
Quarter: 2024Q2

REPORT INFORMATION
  Report Type: Spontaneous
  Country: US (occurrence: US)
  Receive Date: 20240515
  Receipt Date: 20240515
  Transmission Date: 20240716
  Serious: Yes (Other)
  Sender: FDA-Public Use
  Company Number: US-002147023-NVSC2024US098414

PATIENT

DRUGS (1)
  1. KESIMPTA [Suspect]
     Active Substance: OFATUMUMAB
     Indication: Product used for unknown indication
     Dosage: UNK (FIRST INJECTION)
     Route: 065

REACTIONS (8)
  - Secondary progressive multiple sclerosis [Unknown]
  - Musculoskeletal discomfort [Unknown]
  - Spinal cord disorder [Unknown]
  - Muscular weakness [Unknown]
  - Limb discomfort [Unknown]
  - Abdominal discomfort [Unknown]
  - Asthenia [Unknown]
  - Pyrexia [Unknown]
